FAERS Safety Report 16568221 (Version 2)
Quarter: 2019Q3

REPORT INFORMATION
  Report Type: Spontaneous
  Country: CA (occurrence: CA)
  Receive Date: 20190712
  Receipt Date: 20190725
  Transmission Date: 20191004
  Serious: Yes (Hospitalization, Other)
  Sender: FDA-Public Use
  Company Number: CA-SHIRE-CA201921791

PATIENT

DRUGS (14)
  1. SEPTRA [Concomitant]
     Active Substance: SULFAMETHOXAZOLE\TRIMETHOPRIM
     Indication: PRODUCT USED FOR UNKNOWN INDICATION
  2. LANTUS [Concomitant]
     Active Substance: INSULIN GLARGINE
     Indication: PRODUCT USED FOR UNKNOWN INDICATION
  3. SEMAGLUTIDE [Concomitant]
     Active Substance: SEMAGLUTIDE
     Indication: PRODUCT USED FOR UNKNOWN INDICATION
  4. PREDNISONE. [Concomitant]
     Active Substance: PREDNISONE
     Indication: PRODUCT USED FOR UNKNOWN INDICATION
  5. PERINDOPRIL [Concomitant]
     Active Substance: PERINDOPRIL
     Indication: PRODUCT USED FOR UNKNOWN INDICATION
  6. PYRIDOSTIGMINE [Concomitant]
     Active Substance: PYRIDOSTIGMINE
     Indication: PRODUCT USED FOR UNKNOWN INDICATION
  7. APIDRA [Concomitant]
     Active Substance: INSULIN GLULISINE
     Indication: PRODUCT USED FOR UNKNOWN INDICATION
  8. GAMMAGARD LIQUID [Suspect]
     Active Substance: HUMAN IMMUNOGLOBULIN G
     Dosage: UNK
     Route: 042
  9. LORAZEPAM. [Concomitant]
     Active Substance: LORAZEPAM
     Indication: PRODUCT USED FOR UNKNOWN INDICATION
  10. ROSUVASTATIN. [Concomitant]
     Active Substance: ROSUVASTATIN
     Indication: PRODUCT USED FOR UNKNOWN INDICATION
  11. BISOPROLOL [Concomitant]
     Active Substance: BISOPROLOL
     Indication: PRODUCT USED FOR UNKNOWN INDICATION
  12. GAMMAGARD LIQUID [Suspect]
     Active Substance: HUMAN IMMUNOGLOBULIN G
     Indication: MYASTHENIA GRAVIS
     Dosage: 1 GRAM PER KILOGRAM, EVERY 6 WK
     Route: 042
     Dates: start: 20190524, end: 20190524
  13. ALCOHOL. [Concomitant]
     Active Substance: ALCOHOL
     Indication: PRODUCT USED FOR UNKNOWN INDICATION
  14. LEVOTHYROXINE. [Concomitant]
     Active Substance: LEVOTHYROXINE
     Indication: PRODUCT USED FOR UNKNOWN INDICATION

REACTIONS (8)
  - Febrile nonhaemolytic transfusion reaction [Recovered/Resolved]
  - Myasthenia gravis [Unknown]
  - Dyspnoea [Recovered/Resolved]
  - Haemoglobin decreased [Unknown]
  - Anxiety [Unknown]
  - Infusion related reaction [Recovered/Resolved]
  - Hypotension [Unknown]
  - Product use in unapproved indication [Unknown]

NARRATIVE: CASE EVENT DATE: 20190524
